FAERS Safety Report 6801724-9 (Version None)
Quarter: 2010Q2

REPORT INFORMATION
  Report Type: 
  Country: None (occurrence: None)
  Receive Date: 20100629
  Receipt Date: 20100618
  Transmission Date: 20101027
  Serious: Yes (Other)
  Sender: FDA-Public Use
  Company Number: SE-JNJFOC-20100605801

PATIENT
  Age: 11 Year
  Sex: Female
  Weight: 30 kg

DRUGS (4)
  1. REMICADE [Suspect]
     Indication: COLITIS ULCERATIVE
     Route: 042
  2. PREDNISOLONE [Concomitant]
     Indication: COLITIS ULCERATIVE
  3. METHOTREXATE [Concomitant]
     Indication: COLITIS ULCERATIVE
  4. ASACOL [Concomitant]
     Indication: COLITIS ULCERATIVE

REACTIONS (1)
  - WHITE BLOOD CELL COUNT DECREASED [None]
